FAERS Safety Report 11120110 (Version 1)
Quarter: 2015Q2

REPORT INFORMATION
  Report Type: Report from Study
  Country: BR (occurrence: BR)
  Receive Date: 20150518
  Receipt Date: 20150518
  Transmission Date: 20150821
  Serious: Yes (Hospitalization, Other)
  Sender: FDA-Public Use
  Company Number: PHHY2015BR057046

PATIENT
  Age: 33 Year
  Sex: Male

DRUGS (2)
  1. SANDOSTATIN LAR DEPOT [Suspect]
     Active Substance: OCTREOTIDE ACETATE
     Dosage: 1 DF, EACH 20 DAYS
     Route: 065
     Dates: start: 201503
  2. SANDOSTATIN LAR DEPOT [Suspect]
     Active Substance: OCTREOTIDE ACETATE
     Indication: PRODUCT USED FOR UNKNOWN INDICATION
     Dosage: 1 DF, QMO
     Route: 065
     Dates: start: 2012, end: 201503

REACTIONS (5)
  - Malaise [Recovering/Resolving]
  - Cerebrovascular accident [Recovering/Resolving]
  - Hypokinesia [Recovering/Resolving]
  - Seizure [Recovering/Resolving]
  - Patient-device incompatibility [Recovering/Resolving]

NARRATIVE: CASE EVENT DATE: 201406
